FAERS Safety Report 25035703 (Version 1)
Quarter: 2025Q1

REPORT INFORMATION
  Report Type: Spontaneous
  Country: US (occurrence: US)
  Receive Date: 20250304
  Receipt Date: 20250304
  Transmission Date: 20250409
  Serious: Yes (Other)
  Sender: SANDOZ
  Company Number: US-MLMSERVICE-20250217-PI414058-00165-7

PATIENT
  Age: 78 Year
  Sex: Male

DRUGS (6)
  1. ABRAXANE [Suspect]
     Active Substance: PACLITAXEL
     Indication: Pancreatic carcinoma metastatic
     Route: 065
     Dates: start: 20191211, end: 20191231
  2. ALDOXORUBICIN [Suspect]
     Active Substance: ALDOXORUBICIN
     Indication: Pancreatic carcinoma metastatic
     Route: 065
     Dates: start: 20191127, end: 20191220
  3. ANKTIVA [Suspect]
     Active Substance: NOGAPENDEKIN ALFA INBAKICEPT-PMLN
     Indication: Pancreatic carcinoma metastatic
     Route: 058
     Dates: start: 20191213, end: 20200612
  4. CYCLOPHOSPHAMIDE [Suspect]
     Active Substance: CYCLOPHOSPHAMIDE
     Indication: Pancreatic carcinoma metastatic
     Route: 048
     Dates: start: 20191127, end: 20191231
  5. DENOSUMAB [Suspect]
     Active Substance: DENOSUMAB
     Indication: Pancreatic carcinoma metastatic
     Route: 065
     Dates: start: 20191211, end: 201912
  6. GEMCITABINE [Suspect]
     Active Substance: GEMCITABINE
     Indication: Pancreatic carcinoma metastatic
     Route: 065
     Dates: start: 20191211, end: 20191231

REACTIONS (1)
  - Neutropenia [Unknown]

NARRATIVE: CASE EVENT DATE: 20190101
